FAERS Safety Report 26217803 (Version 1)
Quarter: 2025Q4

REPORT INFORMATION
  Report Type: Spontaneous
  Country: CN (occurrence: CN)
  Receive Date: 20251231
  Receipt Date: 20251231
  Transmission Date: 20260118
  Serious: Yes (Other)
  Sender: GILEAD
  Company Number: CN-GILEAD-2025-0742635

PATIENT
  Age: 32 Year

DRUGS (1)
  1. VEMLIDY [Suspect]
     Active Substance: TENOFOVIR ALAFENAMIDE FUMARATE
     Indication: Hepatitis B
     Dosage: UNK
     Route: 065
     Dates: start: 20250621

REACTIONS (3)
  - Hepatic mass [Unknown]
  - Hepatic pain [Unknown]
  - Accessory spleen [Unknown]

NARRATIVE: CASE EVENT DATE: 20251217
